FAERS Safety Report 6686324-6 (Version None)
Quarter: 2010Q2

REPORT INFORMATION
  Report Type: 
  Country: None (occurrence: None)
  Receive Date: 20100419
  Receipt Date: 20100406
  Transmission Date: 20101027
  Serious: Yes (Other)
  Sender: FDA-Public Use
  Company Number: DE-B.I. PHARMACEUTICALS,INC./RIDGEFIELD-2010-DE-02001DE

PATIENT
  Sex: Male
  Weight: 75 kg

DRUGS (1)
  1. SIFROL [Suspect]
     Dosage: 7.2 MG
     Route: 048

REACTIONS (1)
  - MEDICATION ERROR [None]
